FAERS Safety Report 4545279-0 (Version None)
Quarter: 2005Q1

REPORT INFORMATION
  Report Type: 
  Country: None (occurrence: None)
  Receive Date: 20050105
  Receipt Date: 20041229
  Transmission Date: 20050727
  Serious: Yes (Congenital Anomaly)
  Sender: FDA-Public Use
  Company Number: US-JNJFOC-20050100319

PATIENT

DRUGS (6)
  1. ORTHO TRI-CYCLEN [Suspect]
     Indication: DRUG USE FOR UNKNOWN INDICATION
  2. IMITREX [Suspect]
     Dates: start: 20030814, end: 20030901
  3. IMITREX [Suspect]
     Dates: start: 20030814, end: 20030901
  4. IMITREX [Suspect]
     Dates: start: 20030814, end: 20030901
  5. IMITREX [Suspect]
     Indication: MIGRAINE
     Dates: start: 20030814, end: 20030901
  6. TYLENOL W/ CODEINE NO. 3 [Concomitant]

REACTIONS (2)
  - DRUG EXPOSURE DURING PREGNANCY [None]
  - TRISOMY 18 [None]
